FAERS Safety Report 25213505 (Version 1)
Quarter: 2025Q2

REPORT INFORMATION
  Report Type: Spontaneous
  Country: US (occurrence: None)
  Receive Date: 20250417
  Receipt Date: 20250417
  Transmission Date: 20250716
  Serious: Yes (Other)
  Sender: FDA-CTU
  Company Number: None

PATIENT
  Age: 75 Year
  Sex: Male

DRUGS (1)
  1. METOPROLOL TARTRATE [Suspect]
     Active Substance: METOPROLOL TARTRATE
     Dosage: FREQUENCY : DAILY;?
     Route: 048
     Dates: start: 20250413, end: 20250417

REACTIONS (3)
  - Nausea [None]
  - Muscular weakness [None]
  - Arthralgia [None]

NARRATIVE: CASE EVENT DATE: 20250413
